FAERS Safety Report 7502952-X (Version None)
Quarter: 2011Q2

REPORT INFORMATION
  Report Type: 
  Country: None (occurrence: None)
  Receive Date: 20110525
  Receipt Date: 20110509
  Transmission Date: 20111010
  Serious: No
  Sender: FDA-Public Use
  Company Number: US-B.I. PHARMACEUTICALS,INC./RIDGEFIELD-2011-BP-12645BP

PATIENT
  Age: 84 Year
  Sex: Female

DRUGS (2)
  1. LASIX [Concomitant]
     Indication: CARDIAC FAILURE CONGESTIVE
  2. PRADAXA [Suspect]
     Indication: ATRIAL FIBRILLATION
     Dosage: 300 MG
     Route: 048
     Dates: start: 20110411, end: 20110506

REACTIONS (1)
  - OEDEMA PERIPHERAL [None]
